FAERS Safety Report 5572121-1 (Version None)
Quarter: 2007Q4

REPORT INFORMATION
  Report Type: 
  Country: None (occurrence: None)
  Receive Date: 20071221
  Receipt Date: 20071210
  Transmission Date: 20080405
  Serious: Yes (Other)
  Sender: FDA-Public Use
  Company Number: US-PFIZER INC-2007090274

PATIENT
  Age: 52 Year
  Sex: Female

DRUGS (1)
  1. DILANTIN [Suspect]
     Dosage: DAILY DOSE:300MG

REACTIONS (4)
  - DRUG TOXICITY [None]
  - HEADACHE [None]
  - MALAISE [None]
  - PSYCHOSOMATIC DISEASE [None]
